FAERS Safety Report 6123118-4 (Version None)
Quarter: 2009Q1

REPORT INFORMATION
  Report Type: 
  Country: None (occurrence: None)
  Receive Date: 20090318
  Receipt Date: 20090312
  Transmission Date: 20090719
  Serious: Yes (Hospitalization)
  Sender: FDA-Public Use
  Company Number: GB-TYCO HEALTHCARE/MALLINCKRODT-T200800629

PATIENT

DRUGS (7)
  1. OXYCODONE HCL [Suspect]
     Dosage: 15 MG, BID
  2. OXYCODONE HCL [Suspect]
     Dosage: 20 MG, OVER 24 HOURS
     Route: 058
  3. FLUOXETINE [Suspect]
     Dosage: 20 MG, QD
  4. LEVOMEPROMAZINE [Suspect]
     Dosage: 6 MG, BID
  5. HALOPERIDOL [Suspect]
     Dosage: 1.5 MG, QD
  6. HALOPERIDOL [Suspect]
     Dosage: 2.5 MG, OVER 24 HOURS
     Route: 058
  7. CYCLIZINE [Suspect]
     Dosage: 150 MG, OVER 24 HOURS
     Route: 058

REACTIONS (1)
  - AKATHISIA [None]
